FAERS Safety Report 5257762-3 (Version None)
Quarter: 2007Q1

REPORT INFORMATION
  Report Type: 
  Country: None (occurrence: None)
  Receive Date: 20070307
  Receipt Date: 20070223
  Transmission Date: 20070707
  Serious: Yes (Other)
  Sender: FDA-Public Use
  Company Number: PHBS2007BR03373

PATIENT
  Age: 34 Year
  Sex: Female
  Weight: 63 kg

DRUGS (2)
  1. METHERGINE [Suspect]
     Indication: UTERINE HAEMORRHAGE
     Dosage: 0.125 MG, Q8H
     Route: 048
     Dates: start: 20070222
  2. PONSTAN [Concomitant]
     Indication: DYSMENORRHOEA
     Dosage: 1 DF, Q8H

REACTIONS (3)
  - CONDITION AGGRAVATED [None]
  - UTERINE CONTRACTIONS ABNORMAL [None]
  - UTERINE HAEMORRHAGE [None]
